FAERS Safety Report 6963901-6 (Version None)
Quarter: 2010Q3

REPORT INFORMATION
  Report Type: 
  Country: None (occurrence: None)
  Receive Date: 20100831
  Receipt Date: 20100826
  Transmission Date: 20110219
  Serious: Yes (Other)
  Sender: FDA-Public Use
  Company Number: TRP_07218_2010

PATIENT
  Sex: Female

DRUGS (2)
  1. RIBASPHERE [Suspect]
     Indication: PRODUCT USED FOR UNKNOWN INDICATION
     Dosage: DF
  2. PEGASYS [Suspect]
     Indication: PRODUCT USED FOR UNKNOWN INDICATION
     Dosage: DF

REACTIONS (7)
  - APPETITE DISORDER [None]
  - CHAPPED LIPS [None]
  - DRY MOUTH [None]
  - GASTRIC INFECTION [None]
  - RASH GENERALISED [None]
  - RASH PRURITIC [None]
  - TONGUE ULCERATION [None]
